FAERS Safety Report 13413364 (Version 3)
Quarter: 2023Q1

REPORT INFORMATION
  Report Type: Spontaneous
  Country: US (occurrence: US)
  Receive Date: 20170406
  Receipt Date: 20230102
  Transmission Date: 20230418
  Serious: No
  Sender: FDA-Public Use
  Company Number: US-JNJFOC-20170312206

PATIENT
  Age: 21 Year
  Sex: Male

DRUGS (5)
  1. RISPERDAL [Suspect]
     Active Substance: RISPERIDONE
     Indication: Anxiety
     Dosage: VARYING DOSES OF 0.25 MG, 0.5 MG AND 1 MG AND VARYING FREQUENCIES AT BEDTIME, BID AND TID
     Route: 048
     Dates: start: 20070822, end: 20130513
  2. RISPERDAL [Suspect]
     Active Substance: RISPERIDONE
     Indication: Intellectual disability
     Route: 048
     Dates: start: 20130709, end: 20140218
  3. RISPERIDONE [Suspect]
     Active Substance: RISPERIDONE
     Indication: Anxiety
     Dosage: VARYING DOSES OF 0.5 MG, 1 MG AND 2 MG AT VARYING FREQUENCIES OF AT BEDTIME, BID AND TID
     Route: 048
     Dates: start: 20080826, end: 20131104
  4. RISPERIDONE [Suspect]
     Active Substance: RISPERIDONE
     Indication: Intellectual disability
  5. RISPERIDONE [Suspect]
     Active Substance: RISPERIDONE
     Indication: Product used for unknown indication
     Route: 048

REACTIONS (4)
  - Emotional disorder [Unknown]
  - Gynaecomastia [Unknown]
  - Off label use [Unknown]
  - Off label use [Unknown]

NARRATIVE: CASE EVENT DATE: 20070822
